FAERS Safety Report 10922247 (Version 1)
Quarter: 2015Q1

REPORT INFORMATION
  Report Type: Spontaneous
  Country: US (occurrence: US)
  Receive Date: 20150317
  Receipt Date: 20150317
  Transmission Date: 20150721
  Serious: No
  Sender: FDA-Public Use
  Company Number: US-009507513-1503USA002389

PATIENT
  Age: 51 Year
  Sex: Male

DRUGS (6)
  1. CITALOPRAM [Concomitant]
     Active Substance: CITALOPRAM HYDROBROMIDE
  2. PRINIVIL [Concomitant]
     Active Substance: LISINOPRIL
  3. LORAZEPAM. [Concomitant]
     Active Substance: LORAZEPAM
  4. ASCORBIC ACID. [Concomitant]
     Active Substance: ASCORBIC ACID
  5. VITAMINS (UNSPECIFIED) [Concomitant]
     Active Substance: VITAMINS
  6. INTRON A [Suspect]
     Active Substance: INTERFERON ALFA-2B
     Indication: HEPATITIS C
     Dosage: 20 MILLION IU, TIW
     Route: 058
     Dates: start: 20150128

REACTIONS (1)
  - Fatigue [Not Recovered/Not Resolved]

NARRATIVE: CASE EVENT DATE: 20150128
